FAERS Safety Report 6435006-4 (Version None)
Quarter: 2009Q4

REPORT INFORMATION
  Report Type: 
  Country: None (occurrence: None)
  Receive Date: 20091110
  Receipt Date: 20091027
  Transmission Date: 20100525
  Serious: Yes (Other)
  Sender: FDA-Public Use
  Company Number: PHEH2009US14447

PATIENT
  Sex: Female

DRUGS (1)
  1. VIVELLE-DOT [Suspect]
     Dosage: 0.05 MG, DAILY
     Route: 062
     Dates: start: 20040101

REACTIONS (2)
  - LEIOMYOMA [None]
  - PRODUCT QUALITY ISSUE [None]
